FAERS Safety Report 18149609 (Version 1)
Quarter: 2020Q3

REPORT INFORMATION
  Report Type: Spontaneous
  Country: US (occurrence: US)
  Receive Date: 20200813
  Receipt Date: 20200813
  Transmission Date: 20201103
  Serious: Yes (Other)
  Sender: FDA-Public Use
  Company Number: None

PATIENT
  Age: 60 Year
  Sex: Female
  Weight: 80.55 kg

DRUGS (1)
  1. IBRANCE [Suspect]
     Active Substance: PALBOCICLIB
     Indication: BREAST CANCER FEMALE
     Route: 048
     Dates: start: 20190822

REACTIONS (5)
  - Intentional dose omission [None]
  - Nausea [None]
  - Vomiting [None]
  - Blood iron decreased [None]
  - Dehydration [None]

NARRATIVE: CASE EVENT DATE: 20200813
